FAERS Safety Report 24872736 (Version 2)
Quarter: 2025Q4

REPORT INFORMATION
  Report Type: Spontaneous
  Country: US (occurrence: US)
  Receive Date: 20250122
  Receipt Date: 20251112
  Transmission Date: 20260117
  Serious: Yes (Other)
  Sender: SANOFI AVENTIS
  Company Number: US-SA-2025SA019129

PATIENT
  Sex: Female

DRUGS (35)
  1. DUPIXENT [Suspect]
     Active Substance: DUPILUMAB
     Indication: Asthma
     Dosage: 300 MG, QOW
     Route: 058
     Dates: start: 20241126
  2. ALBUTEROL SULFATE [Concomitant]
     Active Substance: ALBUTEROL SULFATE
  3. ASPIRIN [Concomitant]
     Active Substance: ASPIRIN
     Dosage: UNK
  4. BACLOFEN [Concomitant]
     Active Substance: BACLOFEN
  5. FARXIGA [Concomitant]
     Active Substance: DAPAGLIFLOZIN PROPANEDIOL
     Dosage: UNK
  6. FLONASE [Concomitant]
     Active Substance: FLUTICASONE PROPIONATE
  7. GLUCOSAMINE [Concomitant]
     Active Substance: GLUCOSAMINE
  8. HYDROCODONE [Concomitant]
     Active Substance: HYDROCODONE
  9. VITAMIN D3 [Concomitant]
     Active Substance: CHOLECALCIFEROL
  10. VITAMIN B12 [Concomitant]
     Active Substance: CYANOCOBALAMIN
  11. PREDNISONE [Concomitant]
     Active Substance: PREDNISONE
     Dosage: UNK
  12. IPRATROPIUM [Concomitant]
     Active Substance: IPRATROPIUM
  13. ISOSORBIDE [ISOSORBIDE MONONITRATE] [Concomitant]
  14. LASIX [Concomitant]
     Active Substance: FUROSEMIDE
  15. LINZESS [Concomitant]
     Active Substance: LINACLOTIDE
  16. LOPRESSOR [Concomitant]
     Active Substance: METOPROLOL TARTRATE
     Dosage: UNK
  17. LYRICA [Concomitant]
     Active Substance: PREGABALIN
     Dosage: UNK
  18. MELATONIN [Concomitant]
     Active Substance: MELATONIN
     Dosage: UNK
  19. MELOXICAM [Concomitant]
     Active Substance: MELOXICAM
  20. MIACALCIN [Concomitant]
     Active Substance: CALCITONIN SALMON
  21. MUCUS RELIEF [Concomitant]
     Active Substance: GUAIFENESIN
  22. VITAMINS NOS [Concomitant]
     Active Substance: VITAMINS
  23. MUPIROCIN [Concomitant]
     Active Substance: MUPIROCIN
  24. NITROGLYCERIN [Concomitant]
     Active Substance: NITROGLYCERIN
  25. ONDANSETRON [Concomitant]
     Active Substance: ONDANSETRON
  26. OYSTER SHELL [Concomitant]
     Active Substance: OSTREA EDULIS SHELL
     Dosage: UNK
  27. PRILOSEC OTC [Concomitant]
     Active Substance: OMEPRAZOLE MAGNESIUM
  28. SINGULAIR [Concomitant]
     Active Substance: MONTELUKAST SODIUM
     Dosage: UNK
  29. SPIRONOLACTONE [Concomitant]
     Active Substance: SPIRONOLACTONE
     Dosage: UNK
  30. TRELEGY ELLIPTA [Concomitant]
     Active Substance: FLUTICASONE FUROATE\UMECLIDINIUM BROMIDE\VILANTEROL TRIFENATATE
     Dosage: UNK
  31. TYLENOL [Concomitant]
     Active Substance: ACETAMINOPHEN
     Dosage: UNK
  32. CALCITONIN [Concomitant]
     Active Substance: CALCITONIN
  33. NYSTATIN [Concomitant]
     Active Substance: NYSTATIN
  34. DICLOFENAC SODIUM [Concomitant]
     Active Substance: DICLOFENAC SODIUM
  35. AZITHROMYCIN [Concomitant]
     Active Substance: AZITHROMYCIN

REACTIONS (15)
  - Multiple fractures [Not Recovered/Not Resolved]
  - Osteomalacia [Not Recovered/Not Resolved]
  - Mental impairment [Unknown]
  - Abdominal infection [Unknown]
  - Oral candidiasis [Not Recovered/Not Resolved]
  - Muscle spasms [Not Recovered/Not Resolved]
  - Fall [Not Recovered/Not Resolved]
  - Chest discomfort [Not Recovered/Not Resolved]
  - Fatigue [Unknown]
  - Feeding disorder [Unknown]
  - Illness [Unknown]
  - Somnolence [Unknown]
  - Arthralgia [Not Recovered/Not Resolved]
  - Intentional dose omission [Unknown]
  - Product dose omission in error [Unknown]
